FAERS Safety Report 17157407 (Version 1)
Quarter: 2019Q4

REPORT INFORMATION
  Report Type: Report from Study
  Country: MY (occurrence: MY)
  Receive Date: 20191216
  Receipt Date: 20191216
  Transmission Date: 20200122
  Serious: Yes (Death, Hospitalization)
  Sender: FDA-Public Use
  Company Number: PHHY2019MY060658

PATIENT
  Age: 68 Year
  Sex: Male

DRUGS (4)
  1. TASIGNA [Suspect]
     Active Substance: NILOTINIB
     Indication: CHRONIC MYELOID LEUKAEMIA
     Dosage: 300 MG, BID
     Route: 048
     Dates: start: 201812
  2. AZACITIDINE. [Suspect]
     Active Substance: AZACITIDINE
     Indication: CHRONIC MYELOID LEUKAEMIA
     Dosage: 100 MG, FOR 7 DAYS Q 4 WEEKS
     Route: 065
  3. TASIGNA [Suspect]
     Active Substance: NILOTINIB
     Dosage: 300 MG, QD
     Route: 048
  4. TASIGNA [Suspect]
     Active Substance: NILOTINIB
     Dosage: 300 MG, BID
     Route: 048

REACTIONS (5)
  - Pyrexia [Recovered/Resolved]
  - Death [Fatal]
  - Neutrophil count decreased [Recovering/Resolving]
  - Thrombocytopenia [Recovering/Resolving]
  - White blood cell count decreased [Recovering/Resolving]

NARRATIVE: CASE EVENT DATE: 201902
